FAERS Safety Report 21176526 (Version 1)
Quarter: 2022Q3

REPORT INFORMATION
  Report Type: Spontaneous
  Country: GB (occurrence: GB)
  Receive Date: 20220805
  Receipt Date: 20220805
  Transmission Date: 20221026
  Serious: Yes (Disabling)
  Sender: FDA-Public Use
  Company Number: None

PATIENT
  Age: 78 Year
  Sex: Female
  Weight: 97 kg

DRUGS (4)
  1. ROSUVASTATIN CALCIUM [Suspect]
     Active Substance: ROSUVASTATIN CALCIUM
     Indication: Ill-defined disorder
     Dosage: TAKE ONE IN THE EVENING MON, WED AND FRIDAY TO ...
     Dates: start: 20220314, end: 20220725
  2. BENDROFLUMETHIAZIDE [Concomitant]
     Active Substance: BENDROFLUMETHIAZIDE
     Dosage: TAKE ONE EACH MORNING
     Dates: start: 20220307
  3. LEVOTHYROXINE [Concomitant]
     Active Substance: LEVOTHYROXINE
     Dosage: ONE TO BE TAKEN EACH MORNING AT LEAST 30 MINUTE...
     Dates: start: 20220307
  4. PRAVASTATIN [Concomitant]
     Active Substance: PRAVASTATIN
     Dosage: TAKE ONE AT NIGHT
     Dates: start: 20220725

REACTIONS (2)
  - Headache [Recovering/Resolving]
  - Mental impairment [Recovering/Resolving]

NARRATIVE: CASE EVENT DATE: 20220726
